FAERS Safety Report 14189853 (Version 8)
Quarter: 2021Q4

REPORT INFORMATION
  Report Type: Spontaneous
  Country: US (occurrence: US)
  Receive Date: 20171115
  Receipt Date: 20211117
  Transmission Date: 20220303
  Serious: Yes (Hospitalization)
  Sender: FDA-Public Use
  Company Number: US-PFIZER INC-2016426440

PATIENT
  Age: 78 Year
  Sex: Female

DRUGS (1)
  1. LYRICA [Suspect]
     Active Substance: PREGABALIN
     Indication: Toxic neuropathy
     Dosage: UNK

REACTIONS (5)
  - Malaise [Unknown]
  - Off label use [Unknown]
  - Drug effective for unapproved indication [Unknown]
  - Pain [Unknown]
  - Diabetic neuropathy [Unknown]
